FAERS Safety Report 7823525-5 (Version None)
Quarter: 2011Q4

REPORT INFORMATION
  Report Type: 
  Country: None (occurrence: None)
  Receive Date: 20111019
  Receipt Date: 20111017
  Transmission Date: 20120403
  Serious: Yes (Other)
  Sender: FDA-Public Use
  Company Number: VE-PFIZER INC-2011235624

PATIENT
  Age: 70 Year
  Sex: Female

DRUGS (3)
  1. LIPITOR [Suspect]
     Indication: HYPERCHOLESTEROLAEMIA
     Dosage: 80 MG, ONCE A DAY
     Route: 048
     Dates: start: 20080101, end: 20090101
  2. ALTACE [Concomitant]
     Indication: HYPERTENSION
     Dosage: 2.5MG, UNK
     Route: 048
     Dates: end: 20090101
  3. GLUCOFAGE [Concomitant]
     Indication: DIABETES MELLITUS
     Dosage: 750MG, UNK
     Route: 048

REACTIONS (2)
  - STENT PLACEMENT [None]
  - PANCREATITIS [None]
